FAERS Safety Report 7842952-3 (Version None)
Quarter: 2011Q4

REPORT INFORMATION
  Report Type: 
  Country: None (occurrence: None)
  Receive Date: 20111025
  Receipt Date: 20111012
  Transmission Date: 20120403
  Serious: Yes (Death, Life-Threatening, Hospitalization, Other)
  Sender: FDA-Public Use
  Company Number: CA-ELI_LILLY_AND_COMPANY-CA201110002795

PATIENT
  Sex: Female

DRUGS (7)
  1. HYDROCHLOROTHIAZIDE [Concomitant]
  2. ZYPREXA ZYDIS [Suspect]
     Dosage: 5 MG, EACH EVENING
  3. MODECATE [Concomitant]
  4. ZYPREXA [Suspect]
     Indication: SCHIZOPHRENIA
     Dosage: 5 MG, QD
     Dates: start: 19991108, end: 20030221
  5. ZYPREXA [Suspect]
     Dosage: 2.5 MG, QD
  6. ZYPREXA ZYDIS [Suspect]
     Indication: SCHIZOPHRENIA
     Dosage: 10 MG, EACH EVENING
     Dates: end: 20030221
  7. ZYPREXA [Suspect]
     Dosage: 10 MG, QD

REACTIONS (11)
  - CEREBROVASCULAR ACCIDENT [None]
  - WHITE BLOOD CELL COUNT INCREASED [None]
  - BLOOD SODIUM DECREASED [None]
  - FALL [None]
  - HYPERTENSION [None]
  - SYNCOPE [None]
  - PLEURAL EFFUSION [None]
  - LOSS OF CONSCIOUSNESS [None]
  - DIABETES MELLITUS [None]
  - PNEUMONIA [None]
  - RESPIRATORY DISTRESS [None]
